FAERS Safety Report 9030821 (Version 9)
Quarter: 2023Q1

REPORT INFORMATION
  Report Type: Other
  Country: CA (occurrence: None)
  Receive Date: 20130123
  Receipt Date: 20230109
  Transmission Date: 20230418
  Serious: Yes (Hospitalization, Other)
  Sender: FDA-Public Use
  Company Number: CA-ROCHE-1181929

PATIENT
  Age: 19 Year
  Sex: Male
  Weight: 53 kg

DRUGS (12)
  1. RITUXAN [Suspect]
     Active Substance: RITUXIMAB
     Indication: Central nervous system vasculitis
     Dosage: LAST RITUXAN DOSE WAS ON 20/OCT/2014.
     Route: 041
     Dates: start: 20120813, end: 20130308
  2. RITUXAN [Suspect]
     Active Substance: RITUXIMAB
     Route: 042
     Dates: start: 20140313, end: 20220802
  3. FLUCONAZOLE [Concomitant]
     Active Substance: FLUCONAZOLE
  4. ACETAMINOPHEN [Concomitant]
     Active Substance: ACETAMINOPHEN
     Route: 048
     Dates: start: 20120813
  5. DIPHENHYDRAMINE [Concomitant]
     Active Substance: DIPHENHYDRAMINE
     Route: 048
     Dates: start: 20120813
  6. METHYLPREDNISOLONE [Concomitant]
     Active Substance: METHYLPREDNISOLONE
     Route: 042
     Dates: start: 20120813
  7. NOVORAPID [Concomitant]
     Active Substance: INSULIN ASPART
  8. NADOLOL [Concomitant]
     Active Substance: NADOLOL
  9. SULFATRIM [Concomitant]
     Active Substance: SULFAMETHOXAZOLE\TRIMETHOPRIM
  10. PREDNISONE [Concomitant]
     Active Substance: PREDNISONE
  11. PANTOPRAZOLE SODIUM [Concomitant]
     Active Substance: PANTOPRAZOLE SODIUM
  12. NADOLOL [Concomitant]
     Active Substance: NADOLOL

REACTIONS (9)
  - Cerebral haemorrhage [Recovered/Resolved]
  - Varices oesophageal [Recovered/Resolved]
  - Blood glucose increased [Not Recovered/Not Resolved]
  - Heart rate decreased [Unknown]
  - Respiratory rate increased [Unknown]
  - Malaise [Unknown]
  - Weight decreased [Unknown]
  - Oxygen saturation decreased [Unknown]
  - Off label use [Unknown]

NARRATIVE: CASE EVENT DATE: 20121009
